FAERS Safety Report 6073821-X (Version None)
Quarter: 2009Q1

REPORT INFORMATION
  Report Type: 
  Country: None (occurrence: None)
  Receive Date: 20090211
  Receipt Date: 20090205
  Transmission Date: 20090719
  Serious: Yes (Hospitalization)
  Sender: FDA-Public Use
  Company Number: BR-BIOGENIDEC-2009BI004203

PATIENT
  Sex: Female

DRUGS (6)
  1. AVONEX [Suspect]
     Indication: MULTIPLE SCLEROSIS
     Route: 030
     Dates: start: 20080801
  2. AMANTADINE HCL [Concomitant]
     Indication: ASTHENIA
  3. OMEPRAZOLE [Concomitant]
  4. PANTOPRAZOL [Concomitant]
  5. ANALGESICS [Concomitant]
     Indication: PROPHYLAXIS
     Route: 048
  6. ANALGESICS [Concomitant]
     Route: 042
     Dates: start: 20090203, end: 20090203

REACTIONS (5)
  - ABDOMINAL PAIN UPPER [None]
  - ADVERSE DRUG REACTION [None]
  - GASTRITIS [None]
  - PAIN IN EXTREMITY [None]
  - SKIN NODULE [None]
